FAERS Safety Report 10185882 (Version 3)
Quarter: 2014Q3

REPORT INFORMATION
  Report Type: Spontaneous
  Country: CA (occurrence: CA)
  Receive Date: 20140521
  Receipt Date: 20140709
  Transmission Date: 20150326
  Serious: Yes (Hospitalization, Other)
  Sender: FDA-Public Use
  Company Number: CA-AMGEN-CANSP2014035966

PATIENT
  Age: 60 Year
  Sex: Male

DRUGS (2)
  1. SENSIPAR [Suspect]
     Active Substance: CINACALCET HYDROCHLORIDE
     Indication: HYPERPARATHYROIDISM SECONDARY
     Dosage: 30 MG, QD
     Route: 065
     Dates: start: 20140121
  2. ONEALFA [Concomitant]
     Active Substance: ALFACALCIDOL

REACTIONS (8)
  - Dyspnoea [Recovered/Resolved]
  - Asthenia [Recovering/Resolving]
  - Dialysis [Unknown]
  - Calcinosis [Recovering/Resolving]
  - Incision site pain [Recovering/Resolving]
  - Cardiac operation [Unknown]
  - Atrial fibrillation [Not Recovered/Not Resolved]
  - Blood calcium abnormal [Unknown]

NARRATIVE: CASE EVENT DATE: 2014
